FAERS Safety Report 26144909 (Version 1)
Quarter: 2025Q4

REPORT INFORMATION
  Report Type: Spontaneous
  Country: US (occurrence: US)
  Receive Date: 20251211
  Receipt Date: 20251211
  Transmission Date: 20260118
  Serious: No
  Sender: ALCON
  Company Number: US-ALCON LABORATORIES-ALC2025US004928

PATIENT
  Sex: Female

DRUGS (1)
  1. ACOLTREMON [Suspect]
     Active Substance: ACOLTREMON
     Indication: Dry eye
     Dosage: ONE DROP IN EACH EYE ON DAILY, AS PRESCRIBED.
     Route: 047
     Dates: start: 20250810, end: 20250901

REACTIONS (5)
  - Dry eye [Recovered/Resolved]
  - Conjunctivitis [Recovered/Resolved]
  - Eye discharge [Recovered/Resolved]
  - Off label use [Unknown]
  - Eye irritation [Recovered/Resolved]
